FAERS Safety Report 8957613 (Version 1)
Quarter: 2012Q4

REPORT INFORMATION
  Report Type: 
  Country: US (occurrence: US)
  Receive Date: 20121211
  Receipt Date: 20121211
  Transmission Date: 20130627
  Serious: Yes (Hospitalization, Disabling)
  Sender: FDA-Public Use
  Company Number: US-SANOFI-AVENTIS-2012SA088370

PATIENT
  Age: 50 Year
  Sex: Male

DRUGS (4)
  1. LANTUS SOLOSTAR [Suspect]
     Route: 058
  2. SOLOSTAR [Suspect]
  3. APIDRA SOLOSTAR [Suspect]
     Dosage: Dose:35 unit(s)
     Route: 058
  4. SOLOSTAR [Suspect]

REACTIONS (1)
  - Leg amputation [Recovering/Resolving]
